FAERS Safety Report 7208039-8 (Version None)
Quarter: 2011Q1

REPORT INFORMATION
  Report Type: 
  Country: None (occurrence: None)
  Receive Date: 20110104
  Receipt Date: 20101222
  Transmission Date: 20110831
  Serious: No
  Sender: FDA-Public Use
  Company Number: US-PFIZER INC-2010057141

PATIENT
  Sex: Male

DRUGS (2)
  1. ADVIL [Suspect]
     Dosage: UNK
  2. CELEBREX [Suspect]
     Dosage: ONCE A DAY OR TWO

REACTIONS (3)
  - DRUG INTOLERANCE [None]
  - DIARRHOEA [None]
  - EUPHORIC MOOD [None]
